FAERS Safety Report 19809874 (Version 1)
Quarter: 2021Q3

REPORT INFORMATION
  Report Type: Spontaneous
  Country: CN (occurrence: CN)
  Receive Date: 20210908
  Receipt Date: 20210908
  Transmission Date: 20211014
  Serious: Yes (Other)
  Sender: FDA-Public Use
  Company Number: CN-BEH-2021135573

PATIENT
  Age: 62 Year
  Sex: Male
  Weight: 67 kg

DRUGS (3)
  1. ALBURX [Suspect]
     Active Substance: ALBUMIN HUMAN
     Indication: ASCITES
  2. ALBURX [Suspect]
     Active Substance: ALBUMIN HUMAN
     Indication: HYPOALBUMINAEMIA
  3. ALBURX [Suspect]
     Active Substance: ALBUMIN HUMAN
     Indication: HEPATIC CIRRHOSIS
     Dosage: 10 GRAM, OD
     Route: 041
     Dates: start: 20210806, end: 20210809

REACTIONS (8)
  - Chills [Recovered/Resolved]
  - Chills [Unknown]
  - Hyperpyrexia [Unknown]
  - Heart rate increased [Unknown]
  - Body temperature increased [Unknown]
  - Blood pressure decreased [Unknown]
  - Pyrexia [Recovered/Resolved]
  - Temperature intolerance [Unknown]

NARRATIVE: CASE EVENT DATE: 20210806
